FAERS Safety Report 5080058-X (Version None)
Quarter: 2006Q3

REPORT INFORMATION
  Report Type: 
  Country: None (occurrence: None)
  Receive Date: 20060720
  Receipt Date: 20060512
  Transmission Date: 20061208
  Serious: Yes (Hospitalization, Other)
  Sender: FDA-Public Use
  Company Number: 2005154955

PATIENT
  Age: 67 Year
  Sex: Female

DRUGS (2)
  1. CELEBREX [Suspect]
     Indication: ARTHRALGIA
     Dosage: 200 MG (200 MG, 1 IN 1 D), UNKNOWN
     Dates: start: 20040917
  2. CELEBREX [Suspect]
     Indication: PAIN IN EXTREMITY
     Dosage: 200 MG (200 MG, 1 IN 1 D), UNKNOWN
     Dates: start: 20040917

REACTIONS (1)
  - MYOCARDIAL INFARCTION [None]
